FAERS Safety Report 7965314-7 (Version None)
Quarter: 2011Q4

REPORT INFORMATION
  Report Type: 
  Country: None (occurrence: None)
  Receive Date: 20111208
  Receipt Date: 20111128
  Transmission Date: 20120403
  Serious: Yes (Hospitalization)
  Sender: FDA-Public Use
  Company Number: US-BAYER-2011-058301

PATIENT
  Age: 32 Year
  Sex: Female
  Weight: 68.027 kg

DRUGS (8)
  1. ROSITUSSIN COUGH DROP [Concomitant]
  2. YAZ [Suspect]
     Indication: ACNE
  3. ZITHROMAX [Concomitant]
     Dosage: DAILY
     Route: 048
  4. ASMANEX TWISTHALER [Concomitant]
     Dosage: DAILY
     Route: 055
  5. SOLODYN [Concomitant]
     Dosage: UNK
     Route: 048
  6. ANTI-ACNE PREPARATIONS [Concomitant]
  7. YAZ [Suspect]
     Indication: CONTRACEPTION
     Dosage: UNK
     Dates: start: 20090201, end: 20090601
  8. SINGULAIR [Concomitant]
     Dosage: 10 MG, DAILY
     Route: 048

REACTIONS (6)
  - INJURY [None]
  - ANHEDONIA [None]
  - ANXIETY [None]
  - DEEP VEIN THROMBOSIS [None]
  - PAIN [None]
  - PULMONARY EMBOLISM [None]
